FAERS Safety Report 22887491 (Version 2)
Quarter: 2023Q4

REPORT INFORMATION
  Report Type: Report from Study
  Country: US (occurrence: US)
  Receive Date: 20230831
  Receipt Date: 20231005
  Transmission Date: 20240110
  Serious: Yes (Other)
  Sender: FDA-Public Use
  Company Number: US-TAKEDA-2020TUS047421

PATIENT
  Age: 34 Year
  Sex: Female

DRUGS (10)
  1. TEDUGLUTIDE [Suspect]
     Active Substance: TEDUGLUTIDE
     Indication: Short-bowel syndrome
     Dosage: 1.2 MILLIGRAM, QD
     Route: 042
     Dates: start: 201505
  2. TEDUGLUTIDE [Suspect]
     Active Substance: TEDUGLUTIDE
     Indication: Short-bowel syndrome
     Dosage: 1.2 MILLIGRAM, QD
     Route: 042
     Dates: start: 201505
  3. TEDUGLUTIDE [Suspect]
     Active Substance: TEDUGLUTIDE
     Indication: Short-bowel syndrome
     Dosage: 1.2 MILLIGRAM, QD
     Route: 042
     Dates: start: 201505
  4. TEDUGLUTIDE [Suspect]
     Active Substance: TEDUGLUTIDE
     Indication: Short-bowel syndrome
     Dosage: 1.2 MILLIGRAM, QD
     Route: 042
     Dates: start: 201505
  5. AZITHROMYCIN [Concomitant]
     Active Substance: AZITHROMYCIN
     Indication: Sexually transmitted disease
     Dosage: 1 GRAM
     Route: 048
     Dates: start: 20191108, end: 20191108
  6. VANCOMYCIN [Concomitant]
     Active Substance: VANCOMYCIN
     Indication: Infection
     Dosage: 1 GRAM, Q12H
     Route: 042
     Dates: start: 20160414, end: 20160418
  7. LIDOCAINE [Concomitant]
     Active Substance: LIDOCAINE
     Indication: Skin implant removal
     Dosage: 2 MILLILITER, SINGLE
     Route: 050
     Dates: start: 20230323, end: 20230323
  8. SIMETHICONE (DIMETHICONE) [Concomitant]
     Active Substance: DIMETHICONE
     Indication: Flatulence
     Dosage: 80 MILLIGRAM
     Route: 048
     Dates: start: 20220815
  9. POTASSIUM CHLORIDE [Concomitant]
     Active Substance: POTASSIUM CHLORIDE
     Indication: Acute kidney injury
     Dosage: 40 MILLIEQUIVALENT, QD
     Route: 048
     Dates: start: 20220814, end: 20220815
  10. MAGNESIUM SULFATE [Concomitant]
     Active Substance: MAGNESIUM SULFATE
     Indication: Acute kidney injury
     Dosage: 2 GRAM, QD
     Route: 042
     Dates: start: 20220814, end: 20220815

REACTIONS (1)
  - Anal abscess [Recovered/Resolved]

NARRATIVE: CASE EVENT DATE: 20200421
